FAERS Safety Report 17398907 (Version 2)
Quarter: 2020Q4

REPORT INFORMATION
  Report Type: Not Available
  Country: None (occurrence: None)
  Receive Date: 20200210
  Receipt Date: 20201105
  Transmission Date: 20210113
  Serious: Yes (Death, Life-Threatening, Hospitalization)
  Sender: FDA-Public Use
  Company Number: NL-AKRON, INC.-2080071

PATIENT
  Age: 12 Day
  Sex: Female

DRUGS (1)
  1. GENTAMICIN SULFATE OPHTHALMIC SOLUTION [Suspect]
     Active Substance: GENTAMICIN SULFATE

REACTIONS (6)
  - Pulmonary haemorrhage [Fatal]
  - Herpes simplex [Fatal]
  - Hepatic failure [Fatal]
  - Acute hepatitis B [Fatal]
  - Haemorrhage [Fatal]
  - Hypothermia neonatal [Fatal]
